FAERS Safety Report 10035756 (Version 1)
Quarter: 2014Q1

REPORT INFORMATION
  Report Type: Spontaneous
  Country: US (occurrence: None)
  Receive Date: 20140306
  Receipt Date: 20140306
  Transmission Date: 20141002
  Serious: Yes (Other)
  Sender: FDA-Public Use
  Company Number: 163-21880-13034158

PATIENT
  Age: 53 Year
  Sex: Female

DRUGS (1)
  1. REVLIMID (LENALIDOMIDE) (CAPSULE) [Suspect]
     Indication: PLASMA CELL MYELOMA
     Dosage: 15 MG, 14 IN 14 D, PO?
     Route: 048
     Dates: start: 200812

REACTIONS (7)
  - White blood cell count decreased [None]
  - Eye infection [None]
  - Plasma cell myeloma [None]
  - Hearing impaired [None]
  - Headache [None]
  - Fatigue [None]
  - Asthenia [None]
